FAERS Safety Report 19662376 (Version 1)
Quarter: 2021Q3

REPORT INFORMATION
  Report Type: Spontaneous
  Country: US (occurrence: US)
  Receive Date: 20210805
  Receipt Date: 20210805
  Transmission Date: 20211014
  Serious: Yes (Hospitalization)
  Sender: FDA-Public Use
  Company Number: US-ALLERGAN-2127423US

PATIENT
  Sex: Male
  Weight: 90.72 kg

DRUGS (1)
  1. OXYBUTYNIN PCH ? BP [Suspect]
     Active Substance: OXYBUTYNIN
     Indication: URINARY INCONTINENCE
     Route: 065

REACTIONS (2)
  - Blood pressure fluctuation [Unknown]
  - Spinal operation [Unknown]

NARRATIVE: CASE EVENT DATE: 2015
